FAERS Safety Report 24191427 (Version 1)
Quarter: 2024Q3

REPORT INFORMATION
  Report Type: Spontaneous
  Country: US (occurrence: US)
  Receive Date: 20240808
  Receipt Date: 20240808
  Transmission Date: 20241017
  Serious: No
  Sender: JOHNSON AND JOHNSON
  Company Number: US-JNJFOC-20240803330

PATIENT
  Age: 76 Year
  Sex: Male

DRUGS (1)
  1. DARZALEX FASPRO [Suspect]
     Active Substance: DARATUMUMAB\HYALURONIDASE-FIHJ
     Indication: Plasma cell myeloma
     Route: 058
     Dates: start: 20240710

REACTIONS (3)
  - Cardiac disorder [Unknown]
  - Malaise [Unknown]
  - Balance disorder [Unknown]

NARRATIVE: CASE EVENT DATE: 20240726
